FAERS Safety Report 19114759 (Version 1)
Quarter: 2021Q2

REPORT INFORMATION
  Report Type: Spontaneous
  Country: CN (occurrence: CN)
  Receive Date: 20210408
  Receipt Date: 20210408
  Transmission Date: 20210717
  Serious: Yes (Hospitalization, Other)
  Sender: FDA-Public Use
  Company Number: CN-009507513-2104CHN000857

PATIENT
  Age: 86 Year
  Sex: Male
  Weight: 52 kg

DRUGS (2)
  1. SODIUM CHLORIDE. [Concomitant]
     Active Substance: SODIUM CHLORIDE
     Indication: MEDICATION DILUTION
     Dosage: 100 MILLILITER, QD
     Route: 042
     Dates: start: 20210318, end: 20210321
  2. INVANZ [Suspect]
     Active Substance: ERTAPENEM SODIUM
     Indication: PNEUMONIA
     Dosage: 1 GRAM, QD
     Route: 041
     Dates: start: 20210318, end: 20210321

REACTIONS (2)
  - Epilepsy [Recovering/Resolving]
  - Facial spasm [Recovering/Resolving]

NARRATIVE: CASE EVENT DATE: 20210321
